FAERS Safety Report 6506109-0 (Version None)
Quarter: 2009Q4

REPORT INFORMATION
  Report Type: 
  Country: None (occurrence: None)
  Receive Date: 20091217
  Receipt Date: 20091217
  Transmission Date: 20100525
  Serious: No
  Sender: FDA-Public Use
  Company Number: None

PATIENT
  Sex: Female
  Weight: 66.6788 kg

DRUGS (1)
  1. XENICAL [Suspect]
     Indication: BLOOD CHOLESTEROL INCREASED
     Dosage: 120 MG QD OR PRN PO
     Route: 048
     Dates: start: 20030601, end: 20091215

REACTIONS (3)
  - ANXIETY [None]
  - LIVER FUNCTION TEST ABNORMAL [None]
  - TRANSAMINASES INCREASED [None]
